FAERS Safety Report 26062594 (Version 1)
Quarter: 2025Q4

REPORT INFORMATION
  Report Type: Spontaneous
  Country: US (occurrence: None)
  Receive Date: 20251118
  Receipt Date: 20251118
  Transmission Date: 20260118
  Serious: Yes (Hospitalization)
  Sender: FDA-CTU
  Company Number: None

PATIENT
  Age: 76 Year
  Sex: Female

DRUGS (11)
  1. CYLTEZO [Suspect]
     Active Substance: ADALIMUMAB-ADBM
     Indication: Crohn^s disease
     Dates: start: 20250515
  2. ASACOL HD [Concomitant]
     Active Substance: MESALAMINE
  3. BENTYL [Concomitant]
     Active Substance: DICYCLOMINE HYDROCHLORIDE
  4. BIOTIN [Concomitant]
     Active Substance: BIOTIN
  5. CALCIUM [Concomitant]
     Active Substance: CALCIUM
  6. FENTANYL [Concomitant]
     Active Substance: FENTANYL
  7. FOLIC ACID [Concomitant]
     Active Substance: FOLIC ACID
  8. OXYCODONE [Concomitant]
     Active Substance: OXYCODONE
  9. PRENATAL MULTIVITAMIN [Concomitant]
  10. VITAMIN C [Concomitant]
     Active Substance: ASCORBIC ACID
  11. VITAMIN D3 [Concomitant]
     Active Substance: CHOLECALCIFEROL

REACTIONS (2)
  - Peripheral swelling [None]
  - Illness [None]

NARRATIVE: CASE EVENT DATE: 20251105
